FAERS Safety Report 23773307 (Version 1)
Quarter: 2024Q2

REPORT INFORMATION
  Report Type: Report from Study
  Country: PH (occurrence: PH)
  Receive Date: 20240423
  Receipt Date: 20240423
  Transmission Date: 20240715
  Serious: Yes (Hospitalization)
  Sender: FDA-Public Use
  Company Number: PH-OTSUKA-2024_009685

PATIENT
  Sex: Male

DRUGS (2)
  1. TOLVAPTAN [Suspect]
     Active Substance: TOLVAPTAN
     Indication: Product used for unknown indication
     Dosage: 0.5 DF, TIW (15 MG HALF TABLET EVERY MONDAY, WEDNESDAY, AND FRIDAY)
     Route: 065
     Dates: start: 2021
  2. TOLVAPTAN [Suspect]
     Active Substance: TOLVAPTAN
     Dosage: 0.5 DF, TIW (15 MG HALF TABLET EVERY TUESDAY, THURSDAY, AND SATURDAY)
     Route: 065

REACTIONS (5)
  - Food allergy [Unknown]
  - Dyspnoea [Unknown]
  - Wrong technique in product usage process [Unknown]
  - Underdose [Unknown]
  - Inappropriate schedule of product administration [Unknown]

NARRATIVE: CASE EVENT DATE: 20210101
